FAERS Safety Report 25336674 (Version 2)
Quarter: 2025Q2

REPORT INFORMATION
  Report Type: Spontaneous
  Country: GR (occurrence: GR)
  Receive Date: 20250520
  Receipt Date: 20250521
  Transmission Date: 20250717
  Serious: Yes (Disabling)
  Sender: LEO PHARM
  Company Number: None

PATIENT
  Age: 20 Year
  Sex: Female

DRUGS (2)
  1. PROTOPIC [Suspect]
     Active Substance: TACROLIMUS
     Indication: Atopic keratoconjunctivitis
     Dosage: 0.03 PERCENT?DAILY APPLICATION OF TOPICAL TACROLIMUS OINTMENT 0.03 PERCENT (PROLONGED USE)
     Route: 003
  2. PROTOPIC [Suspect]
     Active Substance: TACROLIMUS
     Indication: Atopic keratoconjunctivitis
     Dosage: 0.03%
     Route: 003

REACTIONS (3)
  - Incorrect dose administered [Unknown]
  - Limbal stem cell deficiency [Recovered/Resolved]
  - Off label use [Unknown]
